FAERS Safety Report 7450358 (Version 3)
Quarter: 2013Q4

REPORT INFORMATION
  Report Type: Spontaneous
  Country: US (occurrence: US)
  Receive Date: 20100701
  Receipt Date: 20131023
  Transmission Date: 20140711
  Serious: Yes (Other)
  Sender: FDA-Public Use
  Company Number: US-BAYER-201026212NA

PATIENT
  Age: 23 Year
  Sex: Female
  Weight: 45.81 kg

DRUGS (19)
  1. YASMIN [Suspect]
     Indication: CONTRACEPTION
     Dosage: UNK
     Route: 048
     Dates: start: 2004, end: 2007
  2. YASMIN [Suspect]
     Indication: PREMENSTRUAL SYNDROME
  3. YAZ [Suspect]
     Indication: CONTRACEPTION
     Dosage: UNK
     Dates: start: 2007, end: 200902
  4. YAZ [Suspect]
     Indication: PREMENSTRUAL SYNDROME
  5. METROGEL [Concomitant]
     Indication: VAGINAL DISORDER
     Dosage: UNK UNK, HS
     Route: 067
     Dates: start: 200809
  6. CITALOPRAM [Concomitant]
     Indication: DEPRESSION
     Dosage: 20 MG, UNK
     Route: 048
     Dates: start: 2007
  7. PENICILLIN VK [Concomitant]
     Dosage: UNK
     Route: 048
     Dates: start: 2007
  8. HYDROCODONE W/APAP [Concomitant]
     Dosage: UNK
     Route: 048
     Dates: start: 2007
  9. IBUPROFEN [IBUPROFEN] [Concomitant]
     Dosage: UNK
     Route: 048
     Dates: start: 2007
  10. AZITHROMYCIN [Concomitant]
     Dosage: UNK
     Route: 048
     Dates: start: 2007
  11. BENTYL [Concomitant]
     Indication: IRRITABLE BOWEL SYNDROME
     Dosage: 20 MG, UNK
     Route: 048
     Dates: start: 2007, end: 2009
  12. OMEPRAZOLE [Concomitant]
     Indication: GASTROOESOPHAGEAL REFLUX DISEASE
     Dosage: 20 MG, UNK
     Route: 048
     Dates: start: 2007, end: 2009
  13. OMEPRAZOLE [Concomitant]
     Indication: DYSPEPSIA
  14. ESCITALOPRAM [Concomitant]
     Dosage: 10 MG, UNK
     Route: 048
     Dates: start: 2008
  15. ASPIRIN (E.C.) [ACETYLSALICYLIC ACID] [Concomitant]
     Dosage: 325 MG, QD
     Route: 048
     Dates: start: 2008
  16. ONDANSETRON [Concomitant]
     Dosage: 8 MG, UNK
     Dates: start: 200705
  17. LEXAPRO [Concomitant]
     Dosage: UNK
     Dates: start: 200801
  18. NSAID^S [Concomitant]
     Dosage: UNK UNK, PRN
  19. MOTRIN [Concomitant]
     Dosage: UNK

REACTIONS (8)
  - Cholelithiasis [None]
  - Pain [None]
  - Abdominal pain upper [None]
  - Abdominal pain upper [None]
  - Dyspepsia [None]
  - Emotional distress [None]
  - Anhedonia [None]
  - Cholecystitis chronic [None]
